FAERS Safety Report 5506222-0 (Version None)
Quarter: 2007Q4

REPORT INFORMATION
  Report Type: 
  Country: None (occurrence: None)
  Receive Date: 20071105
  Receipt Date: 20071030
  Transmission Date: 20080405
  Serious: Yes (Hospitalization)
  Sender: FDA-Public Use
  Company Number: US-ELI_LILLY_AND_COMPANY-US200707001823

PATIENT
  Sex: Male
  Weight: 104.31 kg

DRUGS (3)
  1. ZYPREXA [Suspect]
     Dosage: 10 MG, UNK
     Dates: start: 19970101
  2. FISH OIL [Concomitant]
     Dosage: 1200 MG, DAILY (1/D)
  3. ADVIL                              /00109201/ [Concomitant]
     Dosage: UNK, AS NEEDED

REACTIONS (3)
  - ANGIOGRAM [None]
  - DIABETES MELLITUS [None]
  - HYPERGLYCAEMIA [None]
